FAERS Safety Report 9440986 (Version 1)
Quarter: 2013Q3

REPORT INFORMATION
  Report Type: Spontaneous
  Country: ES (occurrence: ES)
  Receive Date: 20130805
  Receipt Date: 20130805
  Transmission Date: 20140515
  Serious: Yes (Hospitalization, Other)
  Sender: FDA-Public Use
  Company Number: ES-COVIDIEN/TYCO HEALTHCARE/MALLINCKRODT-T201303903

PATIENT
  Age: 39 Year
  Sex: Male

DRUGS (6)
  1. EXALGO EXTENDED RELEASE [Suspect]
     Indication: PAIN
     Dosage: 32 MG
     Route: 048
  2. FENTANYL [Suspect]
     Indication: PAIN
     Dosage: 200 UG/HR, 1 IN 72 HRS
     Route: 062
  3. TRAMADOL [Suspect]
     Indication: ANALGESIC THERAPY
     Dosage: UNK
  4. PARACETAMOL [Suspect]
     Indication: ANALGESIC THERAPY
     Dosage: UNK
  5. MORPHINE [Suspect]
     Indication: PAIN
     Dosage: 100 MG, UNK
  6. ALPRAZOLAM [Suspect]
     Indication: PRODUCT USED FOR UNKNOWN INDICATION
     Dosage: 3 MG, UNK

REACTIONS (3)
  - Respiratory depression [Unknown]
  - Drug dependence [Unknown]
  - Renal failure [Unknown]
